FAERS Safety Report 12826296 (Version 1)
Quarter: 2016Q4

REPORT INFORMATION
  Report Type: Spontaneous
  Country: US (occurrence: US)
  Receive Date: 20161006
  Receipt Date: 20161006
  Transmission Date: 20170207
  Serious: No
  Sender: FDA-Public Use
  Company Number: US-JAZZ-2016-US-012786

PATIENT
  Sex: Female

DRUGS (28)
  1. XYREM [Suspect]
     Active Substance: SODIUM OXYBATE
     Dosage: 3 G, BID
     Route: 048
     Dates: start: 201006
  2. ABILIFY [Concomitant]
     Active Substance: ARIPIPRAZOLE
  3. RITALIN [Concomitant]
     Active Substance: METHYLPHENIDATE HYDROCHLORIDE
  4. ALBUTEROL SULFATE. [Concomitant]
     Active Substance: ALBUTEROL SULFATE
  5. NICORETTE [Concomitant]
     Active Substance: NICOTINE
  6. PERCOCET [Concomitant]
     Active Substance: ACETAMINOPHEN\OXYCODONE HYDROCHLORIDE
  7. XYREM [Suspect]
     Active Substance: SODIUM OXYBATE
     Indication: FIBROMYALGIA
     Dosage: 4.5 G, BID
     Route: 048
     Dates: start: 200812, end: 201006
  8. EPIPEN [Concomitant]
     Active Substance: EPINEPHRINE
  9. MULTIVITAMINS [Concomitant]
     Active Substance: VITAMINS
  10. GABAPENTIN. [Concomitant]
     Active Substance: GABAPENTIN
  11. MODAFINIL. [Concomitant]
     Active Substance: MODAFINIL
  12. SINGULAIR [Concomitant]
     Active Substance: MONTELUKAST SODIUM
  13. VOLTAREN [Suspect]
     Active Substance: DICLOFENAC SODIUM
     Indication: PRODUCT USED FOR UNKNOWN INDICATION
  14. FLONASE [Concomitant]
     Active Substance: FLUTICASONE PROPIONATE
  15. LIDODERM [Concomitant]
     Active Substance: LIDOCAINE
  16. NICOTINE. [Concomitant]
     Active Substance: NICOTINE
  17. CLIMARA [Concomitant]
     Active Substance: ESTRADIOL
  18. CYMBALTA [Concomitant]
     Active Substance: DULOXETINE HYDROCHLORIDE
  19. PREDNISONE. [Concomitant]
     Active Substance: PREDNISONE
  20. QVAR [Concomitant]
     Active Substance: BECLOMETHASONE DIPROPIONATE
  21. VITAMIN D2 [Concomitant]
     Active Substance: ERGOCALCIFEROL
  22. NABUMETONE. [Concomitant]
     Active Substance: NABUMETONE
  23. TIZANIDINE HCL [Concomitant]
     Active Substance: TIZANIDINE HYDROCHLORIDE
  24. CALCIUM + VITAMIN D [Concomitant]
     Active Substance: CALCIUM\VITAMIN D
  25. HYDROCORTISONE. [Concomitant]
     Active Substance: HYDROCORTISONE
  26. LAMICTAL [Concomitant]
     Active Substance: LAMOTRIGINE
  27. PROMETRIUM [Concomitant]
     Active Substance: PROGESTERONE
  28. WELLBUTRIN [Concomitant]
     Active Substance: BUPROPION HYDROCHLORIDE

REACTIONS (2)
  - Chronic obstructive pulmonary disease [Unknown]
  - Drug ineffective [Unknown]

NARRATIVE: CASE EVENT DATE: 2016
